FAERS Safety Report 10975849 (Version 2)
Quarter: 2015Q2

REPORT INFORMATION
  Report Type: Spontaneous
  Country: CH (occurrence: CH)
  Receive Date: 20150401
  Receipt Date: 20150416
  Transmission Date: 20150821
  Serious: Yes (Hospitalization, Other)
  Sender: FDA-Public Use
  Company Number: CH-009507513-1503CHE014254

PATIENT
  Age: 58 Year
  Sex: Male

DRUGS (4)
  1. REMERON [Suspect]
     Active Substance: MIRTAZAPINE
     Dosage: 750 MG (25 DOSE UNITS), ONCE
     Route: 048
     Dates: start: 20150118, end: 20150118
  2. ZOLPIDEM TARTRATE. [Suspect]
     Active Substance: ZOLPIDEM TARTRATE
     Dosage: 300 MG, ONCE
     Route: 048
     Dates: start: 20150118, end: 20150118
  3. PROMETHAZINE [Suspect]
     Active Substance: PROMETHAZINE\PROMETHAZINE HYDROCHLORIDE
     Dosage: 20 DOSE UNITS, ONCE
     Route: 048
     Dates: start: 20150118, end: 20150118
  4. DIPHENHYDRAMINE HYDROCHLORIDE. [Suspect]
     Active Substance: DIPHENHYDRAMINE HYDROCHLORIDE
     Dosage: 20 DOSE UNITS, ONCE
     Route: 048
     Dates: start: 20150118, end: 20150118

REACTIONS (7)
  - Hypokalaemia [Recovered/Resolved]
  - Agitation [Recovered/Resolved]
  - Suicide attempt [Recovered/Resolved]
  - Delirium [Recovered/Resolved]
  - Electrocardiogram QRS complex prolonged [Recovered/Resolved]
  - Electrocardiogram QT prolonged [Recovered/Resolved]
  - Somnolence [Recovered/Resolved]

NARRATIVE: CASE EVENT DATE: 20150118
